FAERS Safety Report 5704427-7 (Version None)
Quarter: 2008Q2

REPORT INFORMATION
  Report Type: 
  Country: None (occurrence: None)
  Receive Date: 20080414
  Receipt Date: 20080404
  Transmission Date: 20081010
  Serious: Yes (Hospitalization)
  Sender: FDA-Public Use
  Company Number: B0515705A

PATIENT
  Age: 47 Year
  Sex: Male

DRUGS (2)
  1. COMBIVIR [Suspect]
     Indication: HIV INFECTION
     Route: 048
     Dates: start: 20070501, end: 20080301
  2. KALETRA [Suspect]
     Indication: HIV INFECTION
     Route: 048
     Dates: start: 20070501

REACTIONS (12)
  - ASTHENIA [None]
  - BRONCHITIS [None]
  - CENTRAL-ALVEOLAR HYPOVENTILATION [None]
  - DYSPNOEA [None]
  - GENERAL PHYSICAL HEALTH DETERIORATION [None]
  - LUNG NEOPLASM [None]
  - LYMPHADENOPATHY [None]
  - MUSCULAR WEAKNESS [None]
  - NEUROMYOPATHY [None]
  - RESPIRATORY FAILURE [None]
  - TRANSAMINASES INCREASED [None]
  - WEIGHT DECREASED [None]
